FAERS Safety Report 9315008 (Version 2)
Quarter: 2013Q2

REPORT INFORMATION
  Report Type: Spontaneous
  Country: US (occurrence: US)
  Receive Date: 20130529
  Receipt Date: 20130614
  Transmission Date: 20140414
  Serious: Yes (Hospitalization)
  Sender: FDA-Public Use
  Company Number: US-B.I. PHARMACEUTICALS,INC./RIDGEFIELD-2013-BI-14638BP

PATIENT
  Sex: Female

DRUGS (15)
  1. COMBIVENT [Suspect]
     Dosage: STRENGTH: 18 MCG / 103 MCG; DAILY DOSE: 18 MCG/100 MG
     Route: 055
     Dates: start: 2003
  2. SPIRIVA [Suspect]
     Dosage: 18 MCG
     Route: 055
     Dates: start: 201301
  3. SINGULAIR [Concomitant]
  4. NEURONTIN [Concomitant]
  5. COREG [Concomitant]
  6. ASPIRIN [Concomitant]
  7. NEXIUM [Concomitant]
  8. PLAVIX [Concomitant]
  9. LANTUS INSULIN [Concomitant]
  10. REGLAN [Concomitant]
  11. VASOTEC [Concomitant]
  12. METFORMIN [Concomitant]
  13. POTASSIUM [Concomitant]
  14. NITROSTAT [Concomitant]
  15. PRAVACHOL [Concomitant]

REACTIONS (3)
  - Coronary artery occlusion [Recovered/Resolved]
  - Bronchitis [Unknown]
  - Pneumonia [Unknown]
